FAERS Safety Report 7647447-8 (Version None)
Quarter: 2011Q3

REPORT INFORMATION
  Report Type: 
  Country: None (occurrence: None)
  Receive Date: 20110729
  Receipt Date: 20110729
  Transmission Date: 20111222
  Serious: Yes (Other)
  Sender: FDA-Public Use
  Company Number: None

PATIENT
  Sex: Male
  Weight: 113.6 kg

DRUGS (13)
  1. LAPATINIB [Suspect]
     Indication: PROSTATE CANCER
     Dosage: 500 MG DAILY ORAL
     Route: 048
     Dates: start: 20110701, end: 20110714
  2. AMLODIPINE [Concomitant]
  3. ASPIRIN [Concomitant]
  4. DUTASTERIDE [Concomitant]
  5. ADVIL LIQUI-GELS [Concomitant]
  6. DIOVAN [Concomitant]
  7. HYDROMORPHONE HCL [Concomitant]
  8. AGGRENOX [Concomitant]
  9. KETOCONAZOLE [Concomitant]
  10. FENOFIBRATE [Concomitant]
  11. HYDROCHLOROTHIAZIDE [Concomitant]
  12. CEREFOLIN NAC [Concomitant]
  13. LUPRON DEPOT [Concomitant]

REACTIONS (2)
  - BUNDLE BRANCH BLOCK LEFT [None]
  - CONDUCTION DISORDER [None]
